FAERS Safety Report 14895667 (Version 1)
Quarter: 2018Q2

REPORT INFORMATION
  Report Type: Spontaneous
  Country: US (occurrence: US)
  Receive Date: 20180515
  Receipt Date: 20180515
  Transmission Date: 20180711
  Serious: No
  Sender: FDA-Public Use
  Company Number: US-CELGENEUS-USA-20180503661

PATIENT
  Age: 46 Year
  Sex: Female

DRUGS (1)
  1. OTEZLA [Suspect]
     Active Substance: APREMILAST
     Indication: PRODUCT USED FOR UNKNOWN INDICATION
     Route: 048
     Dates: start: 201804

REACTIONS (4)
  - Dizziness [Recovered/Resolved]
  - Head discomfort [Recovered/Resolved]
  - Diarrhoea [Recovered/Resolved]
  - Motion sickness [Recovered/Resolved]

NARRATIVE: CASE EVENT DATE: 20180411
